FAERS Safety Report 8763783 (Version 2)
Quarter: 2013Q3

REPORT INFORMATION
  Report Type: Spontaneous
  Country: US (occurrence: None)
  Receive Date: 20120827
  Receipt Date: 20130815
  Transmission Date: 20140515
  Serious: Yes (Hospitalization, Other)
  Sender: FDA-Public Use
  Company Number: ADR-2011-11236

PATIENT
  Age: 67 Year
  Sex: Female
  Weight: 74.84 kg

DRUGS (2)
  1. LIORESAL INTRATHECAL [Suspect]
     Indication: MUSCLE SPASTICITY
     Route: 037
  2. LIORESAL INTRATHECAL [Suspect]
     Indication: MOVEMENT DISORDER
     Route: 037

REACTIONS (7)
  - Back pain [None]
  - Irritability [None]
  - Muscle spasticity [None]
  - Device kink [None]
  - Retinal detachment [None]
  - Multiple sclerosis [None]
  - No therapeutic response [None]
